FAERS Safety Report 10171858 (Version 1)
Quarter: 2014Q2

REPORT INFORMATION
  Report Type: Spontaneous
  Country: US (occurrence: None)
  Receive Date: 20140512
  Receipt Date: 20140512
  Transmission Date: 20141212
  Serious: No
  Sender: FDA-Public Use
  Company Number: 2014P1003471

PATIENT
  Age: 39 Year
  Sex: Female

DRUGS (2)
  1. MYORISAN [Suspect]
     Indication: ACNE
     Dates: start: 20131031
  2. LEVOTHYROXINE [Concomitant]

REACTIONS (3)
  - Depression [None]
  - Thyroid function test abnormal [None]
  - Condition aggravated [None]
